FAERS Safety Report 8183868-5 (Version None)
Quarter: 2012Q1

REPORT INFORMATION
  Report Type: 
  Country: None (occurrence: None)
  Receive Date: 20120305
  Receipt Date: 20120227
  Transmission Date: 20120608
  Serious: Yes (Hospitalization)
  Sender: FDA-Public Use
  Company Number: FR-ELI_LILLY_AND_COMPANY-FR201202007379

PATIENT
  Sex: Female

DRUGS (5)
  1. GEMZAR [Suspect]
     Indication: OVARIAN CANCER
     Dosage: 1424 MG, UNKNOWN
     Route: 042
     Dates: end: 20120201
  2. SOLU-MEDROL [Concomitant]
     Indication: PREMEDICATION
     Dosage: 60 MG, UNKNOWN
     Dates: start: 20120201, end: 20120201
  3. CARBOPLATIN [Concomitant]
     Dosage: 263.4 MG, UNKNOWN
     Route: 042
     Dates: start: 20120201
  4. ONDANSETRON [Concomitant]
     Indication: PREMEDICATION
     Dosage: UNK, UNKNOWN
     Dates: start: 20120201, end: 20120201
  5. POLARAMINE [Concomitant]
     Indication: PREMEDICATION
     Dosage: 5 MG, UNKNOWN
     Dates: start: 20120201, end: 20120201

REACTIONS (3)
  - ABDOMINAL PAIN [None]
  - HYPOTENSION [None]
  - CHEST PAIN [None]
